FAERS Safety Report 8243611 (Version 2)
Quarter: 2013Q1

REPORT INFORMATION
  Report Type: Report from Study
  Country: FR (occurrence: FR)
  Receive Date: 20111114
  Receipt Date: 20130320
  Transmission Date: 20140127
  Serious: Yes (Death, Hospitalization)
  Sender: FDA-Public Use
  Company Number: FR-ROCHE-1010651

PATIENT
  Age: 59 Year
  Sex: Female

DRUGS (4)
  1. RITUXIMAB [Suspect]
     Indication: LYMPHOMA
     Route: 042
     Dates: start: 20091207, end: 20100201
  2. RITUXIMAB [Suspect]
     Route: 042
     Dates: start: 20101214, end: 20110104
  3. ENDOXAN [Concomitant]
     Indication: LYMPHOMA
     Route: 065
     Dates: start: 20091207, end: 20100201
  4. FLUDARA [Concomitant]
     Indication: LYMPHOMA
     Route: 065
     Dates: start: 20091207, end: 20100201

REACTIONS (1)
  - Encephalopathy [Fatal]
